FAERS Safety Report 6521366-2 (Version None)
Quarter: 2009Q4

REPORT INFORMATION
  Report Type: 
  Country: None (occurrence: None)
  Receive Date: 20091230
  Receipt Date: 20091221
  Transmission Date: 20100525
  Serious: Yes (Other)
  Sender: FDA-Public Use
  Company Number: BR-ASTRAZENECA-2009SE33181

PATIENT
  Age: 58 Year
  Sex: Female
  Weight: 51 kg

DRUGS (4)
  1. CRESTOR [Suspect]
     Route: 048
     Dates: start: 20090801
  2. CRESTOR [Suspect]
     Route: 048
     Dates: start: 20091001, end: 20091001
  3. GLIFAGE [Concomitant]
     Route: 048
     Dates: end: 20091001
  4. TYLENOL (CAPLET) [Concomitant]
     Route: 048
     Dates: end: 20091001

REACTIONS (4)
  - DRUG DOSE OMISSION [None]
  - LARYNGEAL OEDEMA [None]
  - PRURITUS [None]
  - PRURITUS GENERALISED [None]
